FAERS Safety Report 22101841 (Version 1)
Quarter: 2023Q1

REPORT INFORMATION
  Report Type: Report from Study
  Country: BR (occurrence: BR)
  Receive Date: 20230316
  Receipt Date: 20230316
  Transmission Date: 20230417
  Serious: Yes (Hospitalization, Other)
  Sender: FDA-Public Use
  Company Number: BR-JNJFOC-20230326182

PATIENT
  Age: 71 Year
  Sex: Female

DRUGS (2)
  1. SIMPONI [Suspect]
     Active Substance: GOLIMUMAB
     Indication: Rheumatoid arthritis
     Route: 058
     Dates: start: 20170707
  2. SIMPONI [Suspect]
     Active Substance: GOLIMUMAB

REACTIONS (2)
  - COVID-19 [Unknown]
  - Rheumatoid arthritis [Unknown]

NARRATIVE: CASE EVENT DATE: 20221201
